FAERS Safety Report 11010489 (Version 4)
Quarter: 2015Q2

REPORT INFORMATION
  Report Type: Report from Study
  Country: RU (occurrence: RU)
  Receive Date: 20150410
  Receipt Date: 20150519
  Transmission Date: 20150821
  Serious: Yes (Other)
  Sender: FDA-Public Use
  Company Number: RU-SA-2015SA044816

PATIENT
  Sex: Male
  Weight: 85 kg

DRUGS (5)
  1. LOZAP [Concomitant]
     Active Substance: LOSARTAN
     Indication: HYPERTENSION
     Route: 048
     Dates: start: 201411
  2. BETALOC ZOK [Concomitant]
     Active Substance: METOPROLOL SUCCINATE
     Indication: HYPERTENSION
     Dosage: (FILM-COATED TABLET WITH EXTENDED RELEASE)
     Route: 048
     Dates: start: 20150306
  3. PLAVIX [Suspect]
     Active Substance: CLOPIDOGREL BISULFATE
     Indication: THROMBOSIS PROPHYLAXIS
     Route: 048
     Dates: start: 201411
  4. BETALOC ZOK [Concomitant]
     Active Substance: METOPROLOL SUCCINATE
     Indication: HYPERTENSION
     Dosage: (FILM-COATED TABLET WITH EXTENDED RELEASE)
     Route: 048
     Dates: start: 201411, end: 20150305
  5. THROMBO ASS [Concomitant]
     Active Substance: ASPIRIN
     Indication: THROMBOSIS PROPHYLAXIS
     Route: 048
     Dates: start: 201411

REACTIONS (2)
  - Angina pectoris [Recovered/Resolved]
  - Chest pain [Recovered/Resolved]
